FAERS Safety Report 22525768 (Version 2)
Quarter: 2023Q2

REPORT INFORMATION
  Report Type: Report from Study
  Country: US (occurrence: US)
  Receive Date: 20230606
  Receipt Date: 20230612
  Transmission Date: 20230721
  Serious: Yes (Hospitalization)
  Sender: FDA-Public Use
  Company Number: US-BAUSCH-BL-2023-008631

PATIENT
  Age: 85 Year
  Sex: Male

DRUGS (1)
  1. XIFAXAN [Suspect]
     Active Substance: RIFAXIMIN
     Indication: Product used for unknown indication
     Route: 065
     Dates: start: 2022

REACTIONS (4)
  - Back injury [Unknown]
  - Head injury [Unknown]
  - Fall [Recovered/Resolved]
  - Paracentesis [Unknown]

NARRATIVE: CASE EVENT DATE: 20230418
